FAERS Safety Report 6496735-X (Version None)
Quarter: 2009Q4

REPORT INFORMATION
  Report Type: 
  Country: None (occurrence: None)
  Receive Date: 20091211
  Receipt Date: 20091202
  Transmission Date: 20100525
  Serious: Yes (Other)
  Sender: FDA-Public Use
  Company Number: VALS20090017

PATIENT
  Age: 87 Year
  Sex: Female

DRUGS (1)
  1. VALSARTAN [Suspect]
     Indication: BLADDER CANCER
     Dosage: UNK, INTRAVESICAL
     Route: 043
     Dates: start: 20091104, end: 20091104

REACTIONS (5)
  - DISORIENTATION [None]
  - FALL [None]
  - INJURY [None]
  - MALAISE [None]
  - URINARY RETENTION [None]
